FAERS Safety Report 5136225-X (Version None)
Quarter: 2006Q4

REPORT INFORMATION
  Report Type: 
  Country: None (occurrence: None)
  Receive Date: 20061027
  Receipt Date: 20061019
  Transmission Date: 20070319
  Serious: Yes (Other)
  Sender: FDA-Public Use
  Company Number: US-JNJFOC-20060307895

PATIENT
  Sex: Male
  Weight: 78.93 kg

DRUGS (17)
  1. RISPERDAL [Suspect]
  2. RISPERDAL [Suspect]
  3. RISPERDAL [Suspect]
  4. RISPERDAL [Suspect]
  5. RISPERDAL [Suspect]
  6. RISPERDAL [Suspect]
  7. RISPERDAL [Suspect]
     Indication: BIPOLAR I DISORDER
  8. ZYPREXA [Suspect]
     Indication: DRUG USE FOR UNKNOWN INDICATION
  9. ZANTAC [Concomitant]
  10. NURETRIN [Concomitant]
  11. ZOCOR [Concomitant]
  12. VALIUM [Concomitant]
  13. VENLAFEXINE [Concomitant]
  14. PANCREASE [Concomitant]
  15. KLONOPIN [Concomitant]
  16. CELEXA [Concomitant]
  17. DEPAKOTE [Concomitant]

REACTIONS (6)
  - ADVERSE EVENT [None]
  - BLOOD CHOLESTEROL INCREASED [None]
  - BLOOD TRIGLYCERIDES INCREASED [None]
  - DIABETES MELLITUS INSULIN-DEPENDENT [None]
  - HYPERGLYCAEMIA [None]
  - ILEUS [None]
